FAERS Safety Report 6407808-1 (Version None)
Quarter: 2009Q4

REPORT INFORMATION
  Report Type: 
  Country: None (occurrence: None)
  Receive Date: 20091015
  Receipt Date: 20091006
  Transmission Date: 20100525
  Serious: Yes (Other)
  Sender: FDA-Public Use
  Company Number: CAP09000184

PATIENT
  Age: 50 Year
  Sex: Female

DRUGS (1)
  1. ACTONEL [Suspect]
     Indication: OSTEOPOROSIS PROPHYLAXIS
     Dosage: 75 MG TWO CONSECUTIVE DAYS PER MONTH, ORAL
     Route: 048

REACTIONS (1)
  - NEOPLASM PROGRESSION [None]
